FAERS Safety Report 9555255 (Version 1)
Quarter: 2013Q3

REPORT INFORMATION
  Report Type: Spontaneous
  Country: US (occurrence: None)
  Receive Date: 20130830
  Receipt Date: 20130830
  Transmission Date: 20140515
  Serious: Yes (Hospitalization)
  Sender: FDA-Public Use
  Company Number: KV201300123

PATIENT
  Age: 0 Day
  Sex: 0

DRUGS (1)
  1. MAKENA (HYDROXYPROGESTERONE CAPROATE 250MG/ML) INJECTION, 250MG/ML [Suspect]
     Indication: PREMATURE DELIVERY
     Dates: start: 201301

REACTIONS (1)
  - Premature baby [None]
